FAERS Safety Report 6396593-8 (Version None)
Quarter: 2009Q4

REPORT INFORMATION
  Report Type: 
  Country: None (occurrence: None)
  Receive Date: 20091012
  Receipt Date: 20080617
  Transmission Date: 20100525
  Serious: Yes (Death)
  Sender: FDA-Public Use
  Company Number: TH-CELGENEUS-155-50794-09092187

PATIENT
  Age: 54 Year
  Sex: Female
  Weight: 46 kg

DRUGS (1)
  1. VIDAZA [Suspect]
     Indication: MYELODYSPLASTIC SYNDROME
     Route: 050

REACTIONS (2)
  - DISEASE PROGRESSION [None]
  - MYOCARDIAL INFARCTION [None]
